FAERS Safety Report 22082399 (Version 1)
Quarter: 2023Q1

REPORT INFORMATION
  Report Type: Spontaneous
  Country: US (occurrence: US)
  Receive Date: 20230310
  Receipt Date: 20230310
  Transmission Date: 20230417
  Serious: Yes (Death, Hospitalization, Other)
  Sender: FDA-Public Use
  Company Number: US-LUPIN PHARMACEUTICALS INC.-2023-01807

PATIENT
  Age: 53 Year
  Sex: Male

DRUGS (4)
  1. BUPROPION [Suspect]
     Active Substance: BUPROPION
     Indication: Product used for unknown indication
     Dosage: UNK
     Route: 065
  2. LACOSAMIDE [Suspect]
     Active Substance: LACOSAMIDE
     Indication: Product used for unknown indication
     Dosage: UNK
     Route: 065
  3. MIDODRINE [Suspect]
     Active Substance: MIDODRINE
     Indication: Product used for unknown indication
     Dosage: UNK
     Route: 065
  4. OLANZAPINE [Suspect]
     Active Substance: OLANZAPINE
     Indication: Product used for unknown indication
     Dosage: UNK
     Route: 065

REACTIONS (16)
  - Ventricular arrhythmia [Fatal]
  - Electrocardiogram QRS complex prolonged [Fatal]
  - Depressed level of consciousness [Fatal]
  - Coma [Fatal]
  - Acute kidney injury [Fatal]
  - Electrocardiogram QT prolonged [Fatal]
  - Respiratory depression [Fatal]
  - Seizure [Fatal]
  - Hepatotoxicity [Fatal]
  - Haemolysis [Fatal]
  - Thrombocytopenia [Fatal]
  - Hypotension [Fatal]
  - Metabolic acidosis [Fatal]
  - Leukocytosis [Fatal]
  - Tachycardia [Fatal]
  - Toxicity to various agents [Fatal]
